FAERS Safety Report 23241974 (Version 4)
Quarter: 2024Q1

REPORT INFORMATION
  Report Type: Report from Study
  Country: US (occurrence: US)
  Receive Date: 20231129
  Receipt Date: 20240327
  Transmission Date: 20240409
  Serious: Yes (Hospitalization)
  Sender: FDA-Public Use
  Company Number: US-ARGENX-2023-ARGX-US003923

PATIENT

DRUGS (2)
  1. VYVGART [Suspect]
     Active Substance: EFGARTIGIMOD ALFA-FCAB
     Indication: Myasthenia gravis
     Dosage: UNK
     Route: 042
     Dates: start: 20230925
  2. VYVGART [Suspect]
     Active Substance: EFGARTIGIMOD ALFA-FCAB
     Dosage: UNK UNK, 1/WEEK
     Route: 042
     Dates: start: 202312

REACTIONS (17)
  - Respiratory distress [Unknown]
  - Myasthenia gravis crisis [Unknown]
  - SARS-CoV-2 test positive [Unknown]
  - Diplopia [Unknown]
  - Muscular weakness [Unknown]
  - Mastication disorder [Unknown]
  - Dysphagia [Unknown]
  - Plasmapheresis [Unknown]
  - Eyelid ptosis [Unknown]
  - Vision blurred [Unknown]
  - Cough [Unknown]
  - Respiratory tract congestion [Unknown]
  - Nasopharyngitis [Unknown]
  - Fatigue [Unknown]
  - Therapeutic product effect incomplete [Unknown]
  - Productive cough [Unknown]
  - Wheezing [Unknown]

NARRATIVE: CASE EVENT DATE: 20240321
